FAERS Safety Report 23523423 (Version 1)
Quarter: 2024Q1

REPORT INFORMATION
  Report Type: Spontaneous
  Country: US (occurrence: None)
  Receive Date: 20240214
  Receipt Date: 20240214
  Transmission Date: 20240409
  Serious: Yes (Other)
  Sender: FDA-Public Use
  Company Number: None

PATIENT
  Age: 82 Year
  Sex: Female
  Weight: 80 kg

DRUGS (1)
  1. OGSIVEO [Suspect]
     Active Substance: NIROGACESTAT HYDROBROMIDE
     Indication: Desmoid tumour
     Dosage: FREQUENCY : TWICE A DAY;?
     Route: 048
     Dates: start: 20240131

REACTIONS (1)
  - Epistaxis [None]

NARRATIVE: CASE EVENT DATE: 20240211
